FAERS Safety Report 13568689 (Version 1)
Quarter: 2017Q2

REPORT INFORMATION
  Report Type: Spontaneous
  Country: US (occurrence: US)
  Receive Date: 20170522
  Receipt Date: 20170522
  Transmission Date: 20170830
  Serious: Yes (Hospitalization)
  Sender: FDA-Public Use
  Company Number: US-TAIHO ONCOLOGY INC-EU-2017-00697

PATIENT
  Age: 67 Year
  Sex: Male

DRUGS (3)
  1. LONSURF [Suspect]
     Active Substance: TIPIRACIL HYDROCHLORIDE\TRIFLURIDINE
     Indication: COLORECTAL CANCER
     Route: 048
     Dates: start: 20160708
  2. CIPROFLOXACIN. [Concomitant]
     Active Substance: CIPROFLOXACIN
     Dosage: NI
  3. TRAMADOL. [Concomitant]
     Active Substance: TRAMADOL
     Dosage: NI

REACTIONS (5)
  - Nausea [Recovered/Resolved]
  - Dehydration [Recovered/Resolved]
  - Asthenia [Recovered/Resolved]
  - Gastroenteritis [Unknown]
  - Disease progression [Unknown]

NARRATIVE: CASE EVENT DATE: 201701
